FAERS Safety Report 8578678-0 (Version None)
Quarter: 2012Q3

REPORT INFORMATION
  Report Type: 
  Country: None (occurrence: None)
  Receive Date: 20120808
  Receipt Date: 20120806
  Transmission Date: 20120928
  Serious: Yes (Hospitalization, Other)
  Sender: FDA-Public Use
  Company Number: PHHY2012BR058194

PATIENT
  Sex: Male

DRUGS (2)
  1. COMBIVENT [Concomitant]
     Dosage: UKN, TID
  2. FORMOTEROL FUMARATE [Suspect]
     Indication: EMPHYSEMA
     Dosage: UKN, TID

REACTIONS (3)
  - PULMONARY FUNCTION TEST DECREASED [None]
  - DEPENDENCE [None]
  - MALAISE [None]
